FAERS Safety Report 7252113-7 (Version None)
Quarter: 2011Q1

REPORT INFORMATION
  Report Type: 
  Country: None (occurrence: None)
  Receive Date: 20110128
  Receipt Date: 20100427
  Transmission Date: 20110831
  Serious: No
  Sender: FDA-Public Use
  Company Number: US-ABBOTT-10P-163-0642087-00

PATIENT
  Sex: Female
  Weight: 64.468 kg

DRUGS (4)
  1. HUMIRA [Suspect]
     Route: 058
  2. HUMIRA [Suspect]
     Indication: RHEUMATOID ARTHRITIS
     Route: 058
  3. HUMIRA [Suspect]
     Dosage: DRUG INCREASED
     Route: 058
  4. HUMIRA [Suspect]
     Indication: RHEUMATOID ARTHRITIS
     Dosage: STOPPED MEDICATION FOR 6 MONTHS TO TRY OTHER MEDS
     Route: 058

REACTIONS (5)
  - INJECTION SITE PAIN [None]
  - DRUG INEFFECTIVE [None]
  - INJECTION SITE ERYTHEMA [None]
  - INJECTION SITE WARMTH [None]
  - INJECTION SITE PALLOR [None]
